FAERS Safety Report 12068335 (Version 1)
Quarter: 2016Q1

REPORT INFORMATION
  Report Type: Spontaneous
  Country: US (occurrence: US)
  Receive Date: 20160211
  Receipt Date: 20160211
  Transmission Date: 20160526
  Serious: No
  Sender: FDA-Public Use
  Company Number: US-SMITH AND NEPHEW, INC-2015SMT00539

PATIENT
  Age: 85 Year
  Sex: Female
  Weight: 107.48 kg

DRUGS (24)
  1. FUROSEMIDE. [Concomitant]
     Active Substance: FUROSEMIDE
     Dosage: 40 MG, 1X/DAY
  2. OCUVITE [Concomitant]
     Active Substance: VITAMINS
     Dosage: 1 TABLETS, 1X/DAY
  3. MUCINEX [Concomitant]
     Active Substance: GUAIFENESIN
     Dosage: UNK, AS NEEDED
  4. POTASSIUM [Concomitant]
     Active Substance: POTASSIUM
     Dosage: 20 MEQ, 1X/DAY
  5. FUROSEMIDE. [Concomitant]
     Active Substance: FUROSEMIDE
     Dosage: 20 MG, 1X/DAY
  6. CLARITIN [Concomitant]
     Active Substance: LORATADINE
     Dosage: 10 MG, 1X/DAY
  7. REGRANEX [Suspect]
     Active Substance: BECAPLERMIN
     Indication: POSTOPERATIVE WOUND COMPLICATION
     Dosage: UNK, 1X/DAY
     Route: 061
     Dates: start: 20151111
  8. OXYBUTYNIN ER [Concomitant]
     Active Substance: OXYBUTYNIN
     Dosage: 5 MG, 1X/DAY
  9. TERAZOSIN [Concomitant]
     Active Substance: TERAZOSIN\TERAZOSIN HYDROCHLORIDE
     Dosage: 10 MG, 1X/DAY
  10. LEVOTHYROXINE. [Concomitant]
     Active Substance: LEVOTHYROXINE
     Dosage: 0.2 MG, 1X/DAY
  11. PRAVASTATIN [Concomitant]
     Active Substance: PRAVASTATIN\PRAVASTATIN SODIUM
     Dosage: 40 MG, 1X/DAY
  12. ALBUTEROL NEBULIZER [Concomitant]
     Active Substance: ALBUTEROL
     Dosage: UNK, 2X/DAY
  13. TRAMADOL. [Concomitant]
     Active Substance: TRAMADOL
     Dosage: 50 MG, 2X/DAY
  14. GLYBURIDE/METFORMIN 5/500MG [Concomitant]
     Dosage: 2 TABLETS, 2X/DAY
  15. LOSARTAN. [Concomitant]
     Active Substance: LOSARTAN
     Dosage: 25 MG, 1X/DAY
  16. BABY ASPIRIN [Concomitant]
     Active Substance: ASPIRIN
     Dosage: 81 MG, 1X/DAY
  17. FERROUS SULFATE [Concomitant]
     Active Substance: FERROUS SULFATE\FERROUS SULFATE, DRIED
     Dosage: 325 MG, 1X/DAY
  18. VENTOLIN [Concomitant]
     Active Substance: ALBUTEROL SULFATE
     Dosage: 1 DOSAGE UNITS, 1X/DAY
  19. B VITAMIN(S) [Concomitant]
     Dosage: UNK, 1X/DAY
  20. XARELTO [Concomitant]
     Active Substance: RIVAROXABAN
     Dosage: 20 MG, 1X/DAY
  21. METOPROLOL. [Concomitant]
     Active Substance: METOPROLOL
     Dosage: 100 MG, 2X/DAY
  22. SPIRIVA [Concomitant]
     Active Substance: TIOTROPIUM BROMIDE MONOHYDRATE
     Dosage: 18 ?G, 1X/DAY
  23. FLOVENT [Concomitant]
     Active Substance: FLUTICASONE PROPIONATE
     Dosage: 2 DOSAGE UNITS, 2X/DAY
  24. TYLENOL [Concomitant]
     Active Substance: ACETAMINOPHEN
     Dosage: 500 MG, UNK

REACTIONS (1)
  - Application site haemorrhage [Recovering/Resolving]

NARRATIVE: CASE EVENT DATE: 20151112
